FAERS Safety Report 24140611 (Version 1)
Quarter: 2024Q3

REPORT INFORMATION
  Report Type: Other
  Country: DE (occurrence: DE)
  Receive Date: 20240726
  Receipt Date: 20240726
  Transmission Date: 20241017
  Serious: Yes (Other)
  Sender: APPCO PHARMA
  Company Number: DE-Appco Pharma LLC-2159632

PATIENT
  Age: 40 Year
  Sex: Female

DRUGS (14)
  1. BACLOFEN [Suspect]
     Active Substance: BACLOFEN
     Indication: Tardive dyskinesia
     Route: 065
  2. OXAZEPAM [Suspect]
     Active Substance: OXAZEPAM
     Route: 065
  3. OLANZAPINE [Suspect]
     Active Substance: OLANZAPINE
     Route: 065
  4. CLOZAPINE [Suspect]
     Active Substance: CLOZAPINE
     Route: 065
  5. RISPERIDONE [Suspect]
     Active Substance: RISPERIDONE
     Route: 065
  6. PIPAMPERONE [Suspect]
     Active Substance: PIPAMPERONE
     Route: 065
  7. BUSPIRONE [Suspect]
     Active Substance: BUSPIRONE HYDROCHLORIDE
     Route: 065
  8. DANTROLENE. [Suspect]
     Active Substance: DANTROLENE SODIUM
     Route: 065
  9. TIZANIDINE [Suspect]
     Active Substance: TIZANIDINE
     Route: 065
  10. TRIMIPRAMINE MALEATE [Suspect]
     Active Substance: TRIMIPRAMINE MALEATE
     Route: 065
  11. FLUOXETINE [Suspect]
     Active Substance: FLUOXETINE HYDROCHLORIDE
     Route: 065
  12. MIRTAZAPINE [Suspect]
     Active Substance: MIRTAZAPINE
     Route: 065
  13. CLOBAZAM [Suspect]
     Active Substance: CLOBAZAM
     Route: 065
  14. CLONAZEPAM [Suspect]
     Active Substance: CLONAZEPAM
     Route: 065

REACTIONS (1)
  - Drug ineffective [Unknown]
